FAERS Safety Report 8420773-0 (Version None)
Quarter: 2012Q2

REPORT INFORMATION
  Report Type: 
  Country: None (occurrence: None)
  Receive Date: 20120608
  Receipt Date: 20120605
  Transmission Date: 20120825
  Serious: No
  Sender: FDA-Public Use
  Company Number: US-PFIZER INC-2012135651

PATIENT
  Sex: Male
  Weight: 71.202 kg

DRUGS (6)
  1. LYRICA [Suspect]
     Indication: NEUROPATHY PERIPHERAL
     Dosage: 75 MG, 3X/DAY
     Route: 048
     Dates: start: 20111001, end: 20111001
  2. LYRICA [Suspect]
     Dosage: 100 MG, 3X/DAY
     Route: 048
     Dates: start: 20111001, end: 20111001
  3. LYRICA [Suspect]
     Dosage: 200 MG, 3X/DAY
     Route: 048
     Dates: start: 20111001, end: 20111101
  4. LYRICA [Suspect]
     Dosage: 200 MG, 3X/DAY
     Route: 048
     Dates: start: 20120501
  5. LYRICA [Suspect]
     Dosage: 400 MG (TWO CAPSULES OF 200MG), 3X/DAY
     Route: 048
     Dates: start: 20111101, end: 20120501
  6. PERCOCET [Concomitant]
     Indication: PAIN
     Dosage: UNK

REACTIONS (7)
  - INCORRECT DOSE ADMINISTERED [None]
  - FATIGUE [None]
  - CONFUSIONAL STATE [None]
  - MEMORY IMPAIRMENT [None]
  - PAIN [None]
  - DEPRESSION [None]
  - DRUG INEFFECTIVE [None]
